FAERS Safety Report 17181873 (Version 1)
Quarter: 2019Q4

REPORT INFORMATION
  Report Type: Spontaneous
  Country: US (occurrence: US)
  Receive Date: 20191126
  Receipt Date: 20191126
  Transmission Date: 20200122
  Serious: Yes (Death)
  Sender: FDA-Public Use
  Company Number: None

PATIENT
  Age: 88 Year
  Sex: Female
  Weight: 54.43 kg

DRUGS (6)
  1. WARFARIN 2MG TABLET [Suspect]
     Active Substance: WARFARIN
     Indication: TRANSIENT ISCHAEMIC ATTACK
     Dosage: ?          QUANTITY:1 DF DOSAGE FORM;OTHER FREQUENCY:DIALY AT BEDTIME;?
     Route: 048
     Dates: start: 20181107
  2. METOPROLOL. [Concomitant]
     Active Substance: METOPROLOL
  3. PACEMAKER FOR AF. [Suspect]
     Active Substance: DEVICE
  4. VITAMIN D3 [Concomitant]
     Active Substance: CHOLECALCIFEROL
  5. DONEPEZIL 10MG TABLET [Suspect]
     Active Substance: DONEPEZIL HYDROCHLORIDE
     Dosage: ?          QUANTITY:1 DF DOSAGE FORM;OTHER FREQUENCY:DAILY AT BEDTIME;?
     Route: 048
     Dates: start: 20181107
  6. LISINPOPRIL [Concomitant]

REACTIONS (2)
  - Cerebellar haemorrhage [None]
  - Unresponsive to stimuli [None]

NARRATIVE: CASE EVENT DATE: 20190325
